FAERS Safety Report 10929937 (Version 2)
Quarter: 2015Q1

REPORT INFORMATION
  Report Type: Spontaneous
  Country: US (occurrence: None)
  Receive Date: 20150317
  Receipt Date: 20150319
  Transmission Date: 20150721
  Serious: Yes (Hospitalization)
  Sender: FDA-Public Use
  Company Number: 15AE012

PATIENT
  Age: 11 Month
  Sex: Female

DRUGS (1)
  1. CVS ACETAMINOPHEN 500 MG RAPID RELEASE GEL CAPS [Suspect]
     Active Substance: ACETAMINOPHEN
     Dosage: UNIQUE ID:  GELCAP IMPRINT L-5?

REACTIONS (2)
  - Accidental exposure to product by child [None]
  - Failure of child resistant mechanism for pharmaceutical product [None]

NARRATIVE: CASE EVENT DATE: 20150302
